FAERS Safety Report 14229555 (Version 5)
Quarter: 2019Q2

REPORT INFORMATION
  Report Type: Spontaneous
  Country: US (occurrence: US)
  Receive Date: 20171128
  Receipt Date: 20190527
  Transmission Date: 20190711
  Serious: Yes (Disabling, Other)
  Sender: FDA-Public Use
  Company Number: US-ASTRAZENECA-2017SF18950

PATIENT
  Age: 26993 Day
  Sex: Male
  Weight: 86.2 kg

DRUGS (64)
  1. NEXIUM [Suspect]
     Active Substance: ESOMEPRAZOLE MAGNESIUM
     Indication: GASTROOESOPHAGEAL REFLUX DISEASE
     Route: 048
     Dates: start: 20150323
  2. ALLEGRA [Concomitant]
     Active Substance: FEXOFENADINE HYDROCHLORIDE
     Indication: SINUS DISORDER
     Route: 065
     Dates: start: 2013
  3. VALSARTAN. [Concomitant]
     Active Substance: VALSARTAN
     Route: 065
  4. VIAGRA [Concomitant]
     Active Substance: SILDENAFIL CITRATE
     Route: 065
  5. COLESEVELAM [Concomitant]
     Active Substance: COLESEVELAM
     Dosage: 625.0MG UNKNOWN
     Route: 048
     Dates: start: 20121025
  6. OCUVITE [Concomitant]
     Active Substance: VITAMINS
     Route: 048
  7. NEXIUM [Suspect]
     Active Substance: ESOMEPRAZOLE MAGNESIUM
     Indication: GASTROOESOPHAGEAL REFLUX DISEASE
     Route: 048
     Dates: start: 20140522
  8. NEXIUM [Suspect]
     Active Substance: ESOMEPRAZOLE MAGNESIUM
     Indication: GASTROOESOPHAGEAL REFLUX DISEASE
     Route: 048
     Dates: start: 20140522
  9. ASPIRIN. [Concomitant]
     Active Substance: ASPIRIN
     Indication: COAGULATION TIME PROLONGED
     Dosage: 81.0MG UNKNOWN
     Route: 065
     Dates: start: 20110331
  10. CIPROFLOXACIN. [Concomitant]
     Active Substance: CIPROFLOXACIN
     Route: 065
  11. ATORVASTATIN [Concomitant]
     Active Substance: ATORVASTATIN
     Route: 065
  12. PROCAINE HYDROCHLORIDE [Concomitant]
     Active Substance: PROCAINE HYDROCHLORIDE
  13. FEXOFENADINE [Concomitant]
     Active Substance: FEXOFENADINE\FEXOFENADINE HYDROCHLORIDE
     Dosage: 180.0MG UNKNOWN
     Route: 048
     Dates: start: 20130313
  14. LEVEMIR [Concomitant]
     Active Substance: INSULIN DETEMIR
     Route: 065
  15. KLOR-CON [Concomitant]
     Active Substance: POTASSIUM CHLORIDE
     Route: 065
  16. BISOPROLOL [Concomitant]
     Active Substance: BISOPROLOL
     Route: 065
  17. SITAGLIPTIN [Concomitant]
     Active Substance: SITAGLIPTIN
     Route: 065
  18. HYTRIN [Concomitant]
     Active Substance: TERAZOSIN HYDROCHLORIDE
     Dosage: AT BEDTIME2.0MG UNKNOWN
     Route: 048
  19. DIOVAN [Concomitant]
     Active Substance: VALSARTAN
     Route: 048
  20. NEXIUM [Suspect]
     Active Substance: ESOMEPRAZOLE MAGNESIUM
     Indication: GASTROOESOPHAGEAL REFLUX DISEASE
     Dosage: GENERIC
     Route: 065
  21. ASPIRIN. [Concomitant]
     Active Substance: ASPIRIN
     Indication: COAGULATION TIME PROLONGED
     Dosage: UNKNOWN
     Route: 065
     Dates: start: 2013
  22. FLUOCINONIDE. [Concomitant]
     Active Substance: FLUOCINONIDE
     Route: 065
  23. FLU SHOT [Concomitant]
     Active Substance: INFLUENZA VIRUS VACCINE
  24. JANUMET [Concomitant]
     Active Substance: METFORMIN HYDROCHLORIDE\SITAGLIPTIN PHOSPHATE
     Indication: DIABETES MELLITUS
     Dosage: 50.0MG UNKNOWN
  25. ATORVASTATIN [Concomitant]
     Active Substance: ATORVASTATIN
     Dosage: 10.0MG UNKNOWN
     Route: 048
     Dates: start: 20141231
  26. MUCINEX [Concomitant]
     Active Substance: GUAIFENESIN
     Dosage: 600.0MG UNKNOWN
     Route: 048
     Dates: start: 20120526
  27. METOPROLOL. [Concomitant]
     Active Substance: METOPROLOL
     Route: 048
  28. NEXIUM [Suspect]
     Active Substance: ESOMEPRAZOLE MAGNESIUM
     Indication: GASTROOESOPHAGEAL REFLUX DISEASE
     Dosage: GENERIC
     Route: 065
  29. HYDRALAZINE [Concomitant]
     Active Substance: HYDRALAZINE HYDROCHLORIDE
     Route: 065
  30. FUROSEMIDE. [Concomitant]
     Active Substance: FUROSEMIDE
     Dates: start: 20160414
  31. LOSARTAN. [Concomitant]
     Active Substance: LOSARTAN
     Dosage: 50.0MG UNKNOWN
     Route: 048
     Dates: start: 20141217
  32. BENZONATATE. [Concomitant]
     Active Substance: BENZONATATE
     Dosage: 100.0MG UNKNOWN
     Route: 048
  33. PRESERVISION [Concomitant]
     Active Substance: MINERALS\VITAMINS
     Route: 048
  34. NEXIUM [Suspect]
     Active Substance: ESOMEPRAZOLE MAGNESIUM
     Indication: GASTROOESOPHAGEAL REFLUX DISEASE
     Route: 048
     Dates: start: 2014
  35. NEXIUM [Suspect]
     Active Substance: ESOMEPRAZOLE MAGNESIUM
     Indication: GASTROOESOPHAGEAL REFLUX DISEASE
     Route: 048
     Dates: start: 20150323
  36. HUMALOG [Concomitant]
     Active Substance: INSULIN LISPRO
     Route: 065
  37. GUAIFENESIN. [Concomitant]
     Active Substance: GUAIFENESIN
     Route: 065
  38. TERAZOSIN [Concomitant]
     Active Substance: TERAZOSIN\TERAZOSIN HYDROCHLORIDE
     Route: 065
  39. JANUMET [Concomitant]
     Active Substance: METFORMIN HYDROCHLORIDE\SITAGLIPTIN PHOSPHATE
     Indication: DIABETES MELLITUS
     Dosage: 50/1,000 MG UNKNOWN
     Route: 065
     Dates: start: 20110331
  40. CRESTOR [Concomitant]
     Active Substance: ROSUVASTATIN CALCIUM
  41. ZETIA [Concomitant]
     Active Substance: EZETIMIBE
     Dosage: 100.0MG UNKNOWN
     Route: 048
     Dates: start: 20141231
  42. NEXIUM [Suspect]
     Active Substance: ESOMEPRAZOLE MAGNESIUM
     Indication: GASTROOESOPHAGEAL REFLUX DISEASE
     Route: 048
     Dates: start: 2014
  43. NEXIUM [Suspect]
     Active Substance: ESOMEPRAZOLE MAGNESIUM
     Indication: GASTROOESOPHAGEAL REFLUX DISEASE
     Route: 048
     Dates: start: 20130116, end: 2015
  44. NEXIUM [Suspect]
     Active Substance: ESOMEPRAZOLE MAGNESIUM
     Indication: GASTROOESOPHAGEAL REFLUX DISEASE
     Route: 048
     Dates: start: 20130116, end: 2015
  45. GAVISCON [Concomitant]
     Active Substance: ALUMINUM HYDROXIDE\MAGNESIUM CARBONATE
     Route: 065
     Dates: start: 1979, end: 2013
  46. TAMSULOSIN [Concomitant]
     Active Substance: TAMSULOSIN
     Route: 065
  47. NORVASC [Concomitant]
     Active Substance: AMLODIPINE BESYLATE
     Route: 065
  48. HYDROCOD/APAP [Concomitant]
     Route: 065
  49. INVOKANA [Concomitant]
     Active Substance: CANAGLIFLOZIN
     Route: 065
  50. COZAAR [Concomitant]
     Active Substance: LOSARTAN POTASSIUM
     Indication: BLOOD PRESSURE MEASUREMENT
     Dosage: 50.0MG UNKNOWN
  51. COZAAR [Concomitant]
     Active Substance: LOSARTAN POTASSIUM
     Indication: RENAL DISORDER
     Dosage: 50.0MG UNKNOWN
  52. LEVAQUIN [Concomitant]
     Active Substance: LEVOFLOXACIN
  53. EZETIMIBE/SIMVASTATIN [Concomitant]
     Active Substance: EZETIMIBE\SIMVASTATIN
     Dosage: 10.0MG UNKNOWN
     Route: 048
     Dates: start: 20130402
  54. TYLENOL [Concomitant]
     Active Substance: ACETAMINOPHEN
     Route: 048
     Dates: start: 20121228
  55. METHYLPREDNISOLONE. [Concomitant]
     Active Substance: METHYLPREDNISOLONE
     Dosage: 4.0MG UNKNOWN
     Route: 048
     Dates: start: 20120120
  56. ASPIRIN. [Concomitant]
     Active Substance: ASPIRIN
     Indication: MYOCARDIAL INFARCTION
     Dosage: 81.0MG UNKNOWN
     Route: 065
     Dates: start: 20110331
  57. ASPIRIN. [Concomitant]
     Active Substance: ASPIRIN
     Indication: MYOCARDIAL INFARCTION
     Dosage: UNKNOWN
     Route: 065
     Dates: start: 2013
  58. TRAMADOL. [Concomitant]
     Active Substance: TRAMADOL
     Route: 065
  59. MOMETASONE FUROATE. [Concomitant]
     Active Substance: MOMETASONE FUROATE
     Route: 065
  60. LEVOFLOXACIN. [Concomitant]
     Active Substance: LEVOFLOXACIN
     Route: 065
  61. EZETIMIBE. [Concomitant]
     Active Substance: EZETIMIBE
     Route: 065
  62. LIDOCAINE. [Concomitant]
     Active Substance: LIDOCAINE
     Route: 065
  63. COZAAR [Concomitant]
     Active Substance: LOSARTAN POTASSIUM
     Indication: DIABETES MELLITUS
     Dosage: 50.0MG UNKNOWN
  64. LISINOPRIL. [Concomitant]
     Active Substance: LISINOPRIL
     Indication: RENAL DISORDER
     Dates: start: 20120118

REACTIONS (4)
  - End stage renal disease [Unknown]
  - Acute kidney injury [Unknown]
  - Renal failure [Not Recovered/Not Resolved]
  - Chronic kidney disease [Unknown]

NARRATIVE: CASE EVENT DATE: 20150408
